FAERS Safety Report 9369691 (Version 1)
Quarter: 2013Q2

REPORT INFORMATION
  Report Type: Spontaneous
  Country: US (occurrence: US)
  Receive Date: 20130626
  Receipt Date: 20130626
  Transmission Date: 20140414
  Serious: Yes (Death)
  Sender: FDA-Public Use
  Company Number: US-JNJFOC-20130612328

PATIENT
  Age: 68 Year
  Sex: Male

DRUGS (8)
  1. INVOKANA [Suspect]
     Indication: TYPE 2 DIABETES MELLITUS
     Route: 048
     Dates: start: 20130430
  2. AZOR [Concomitant]
     Indication: CARDIAC DISORDER
     Route: 048
  3. ZETIA [Concomitant]
     Indication: CARDIAC DISORDER
     Route: 048
  4. ATIVAN [Concomitant]
     Route: 048
  5. AMARYL [Concomitant]
     Indication: DIABETES MELLITUS
     Route: 048
  6. TRADJENTA [Concomitant]
     Indication: DIABETES MELLITUS
     Route: 048
  7. VICODIN [Concomitant]
     Route: 048
  8. TORADOL [Concomitant]
     Route: 048

REACTIONS (1)
  - Death [Fatal]
